FAERS Safety Report 8218636-9 (Version None)
Quarter: 2012Q1

REPORT INFORMATION
  Report Type: 
  Country: None (occurrence: None)
  Receive Date: 20120319
  Receipt Date: 20120308
  Transmission Date: 20120608
  Serious: Yes (Hospitalization)
  Sender: FDA-Public Use
  Company Number: PHHO2011AT018508

PATIENT
  Sex: Male
  Weight: 103.5 kg

DRUGS (7)
  1. BISOPROLOL FUMARATE [Concomitant]
     Indication: CARDIAC FAILURE CONGESTIVE
     Dosage: 5 MG, QD
     Dates: start: 20081017
  2. HYDROCHLOROTHIAZIDE [Concomitant]
     Indication: CARDIAC FAILURE CONGESTIVE
     Dosage: 25 MG, QD
     Dates: start: 20110504
  3. URITAB [Concomitant]
     Indication: ATRIAL FIBRILLATION
     Dosage: 0.1 MG, UNK
     Dates: start: 20081017
  4. SPIRONOLACTONE [Concomitant]
     Indication: CARDIAC FAILURE CONGESTIVE
     Dosage: 50 MG, QD
     Dates: start: 20081017
  5. UROSIN [Concomitant]
     Indication: HYPERURICAEMIA
     Dosage: 300 MG, QD
     Dates: start: 19980101
  6. TORSEMIDE [Concomitant]
     Indication: CARDIAC FAILURE CONGESTIVE
     Dosage: 20 MG, QD
     Dates: start: 20100527
  7. ALISKIREN [Suspect]
     Indication: CARDIAC FAILURE
     Dosage: UNK
     Route: 048
     Dates: start: 20110622

REACTIONS (1)
  - CARDIAC FAILURE [None]
